FAERS Safety Report 6015004-5 (Version None)
Quarter: 2008Q4

REPORT INFORMATION
  Report Type: 
  Country: None (occurrence: None)
  Receive Date: 20081219
  Receipt Date: 20081212
  Transmission Date: 20090506
  Serious: Yes (Hospitalization)
  Sender: FDA-Public Use
  Company Number: JP-ALLERGAN-0816009US

PATIENT
  Sex: Male

DRUGS (7)
  1. BOTULINUM TOXIN TYPE A [Suspect]
     Indication: TORTICOLLIS
     Dosage: 60 UNITS, SINGLE
     Route: 030
     Dates: start: 20070302, end: 20070302
  2. BOTULINUM TOXIN TYPE A [Suspect]
     Dosage: 60 UNITS, SINGLE
     Route: 030
     Dates: start: 20070629, end: 20070629
  3. PHENOBARBITAL [Concomitant]
     Indication: EPILEPSY
     Dosage: 80 MG, QD
     Route: 048
  4. LANSOPRAZOLE [Concomitant]
     Indication: GASTROOESOPHAGEAL REFLUX DISEASE
     Dosage: 30 MG, QD
  5. FAMOTIDINE [Concomitant]
     Indication: GASTROOESOPHAGEAL REFLUX DISEASE
     Dosage: 30 MG, QD
  6. ALUMINIUM HYDROXIDE W/ MAGNESIUM HYDROXIDE [Concomitant]
     Indication: GASTROOESOPHAGEAL REFLUX DISEASE
     Dosage: 25 ML, QD
  7. CARBOCISTEINE [Concomitant]
     Indication: BRONCHITIS CHRONIC
     Dosage: 750 MG, QD

REACTIONS (2)
  - HYPOXIA [None]
  - RESPIRATORY FAILURE [None]
